FAERS Safety Report 15363385 (Version 7)
Quarter: 2018Q4

REPORT INFORMATION
  Report Type: Report from Study
  Country: US (occurrence: US)
  Receive Date: 20180907
  Receipt Date: 20181114
  Transmission Date: 20190204
  Serious: Yes (Death, Hospitalization, Other)
  Sender: FDA-Public Use
  Company Number: US-ACTELION-A-NJ2018-178250

PATIENT
  Age: 62 Year
  Sex: Female
  Weight: 62.13 kg

DRUGS (16)
  1. LEVOTHYROXINE. [Concomitant]
     Active Substance: LEVOTHYROXINE
     Indication: HYPOTHYROIDISM
     Dosage: 88 MCG, QD
  2. ARNUITY ELLIPTA [Concomitant]
     Active Substance: FLUTICASONE FUROATE
     Indication: ASTHMA
     Dosage: 200 MCG, QD
  3. VSL 3 [Concomitant]
     Active Substance: PROBIOTICS NOS
     Dosage: 112.5 BILLION QD
  4. FIBERCON [Concomitant]
     Active Substance: CALCIUM POLYCARBOPHIL
  5. PLECANATIDE [Concomitant]
     Active Substance: PLECANATIDE
     Indication: CONSTIPATION
  6. POTASSIUM CHLORIDE. [Concomitant]
     Active Substance: POTASSIUM CHLORIDE
     Dosage: 20 MEQ, BID
     Route: 048
  7. PRAVASTATIN. [Concomitant]
     Active Substance: PRAVASTATIN
     Indication: DYSLIPIDAEMIA
     Dosage: 20 MG, QD
  8. VITAMIN D3 [Concomitant]
     Active Substance: CHOLECALCIFEROL
     Indication: OSTEOARTHRITIS
  9. ALLOPURINOL. [Concomitant]
     Active Substance: ALLOPURINOL
     Indication: GOUT
     Dosage: 100 MG, QD
  10. VELETRI [Suspect]
     Active Substance: EPOPROSTENOL
     Indication: PULMONARY ARTERIAL HYPERTENSION
     Dosage: 6 NG/KG, PER MIN
     Route: 042
     Dates: start: 20180821
  11. ADEMPAS [Concomitant]
     Active Substance: RIOCIGUAT
  12. OPSUMIT [Suspect]
     Active Substance: MACITENTAN
     Indication: PULMONARY ARTERIAL HYPERTENSION
     Dosage: 10 MG, QD
     Route: 048
     Dates: start: 20171018
  13. ADVAIR HFA [Concomitant]
     Active Substance: FLUTICASONE PROPIONATE\SALMETEROL XINAFOATE
  14. TRIAMTERENE AND HYDROCHLOROTHIAZIDE [Concomitant]
     Active Substance: HYDROCHLOROTHIAZIDE\TRIAMTERENE
     Indication: HYPERTENSION
     Dosage: 37.5/25MG TID
  15. PANTOPRAZOLE [Concomitant]
     Active Substance: PANTOPRAZOLE
     Indication: GASTROOESOPHAGEAL REFLUX DISEASE
  16. BUMETANIDE. [Concomitant]
     Active Substance: BUMETANIDE
     Indication: PULMONARY ARTERIAL HYPERTENSION
     Dosage: 1 MG, BID
     Route: 048

REACTIONS (32)
  - Polyuria [Unknown]
  - Generalised oedema [Unknown]
  - Osteoarthritis [Unknown]
  - Asthma [Unknown]
  - Abdominal pain [Fatal]
  - Disease progression [Recovered/Resolved]
  - Mobility decreased [Unknown]
  - Abdominal distension [Unknown]
  - Anal incontinence [Unknown]
  - Pulmonary arterial hypertension [Fatal]
  - Headache [Unknown]
  - Diarrhoea [Unknown]
  - Rectal prolapse [Unknown]
  - Metabolic acidosis [Fatal]
  - Pneumonia [Unknown]
  - Asthenia [Unknown]
  - Gout [Unknown]
  - Dyslipidaemia [Unknown]
  - Gastrooesophageal reflux disease [Unknown]
  - Constipation [Unknown]
  - Encephalopathy [Fatal]
  - Lactic acidosis [Fatal]
  - Tachycardia [Unknown]
  - Dyspnoea [Unknown]
  - Right ventricular dilatation [Unknown]
  - Renal failure [Unknown]
  - Hypotension [Unknown]
  - Hypokalaemia [Unknown]
  - Fatigue [Unknown]
  - Disturbance in attention [Unknown]
  - Pain [Unknown]
  - Blood bilirubin increased [Not Recovered/Not Resolved]

NARRATIVE: CASE EVENT DATE: 20180911
